FAERS Safety Report 20748001 (Version 1)
Quarter: 2022Q2

REPORT INFORMATION
  Report Type: Spontaneous
  Country: NL (occurrence: NL)
  Receive Date: 20220425
  Receipt Date: 20220425
  Transmission Date: 20220721
  Serious: Yes (Other)
  Sender: FDA-Public Use
  Company Number: NL-LRB-00772093

PATIENT
  Age: 64 Year
  Sex: Female
  Weight: 88 kg

DRUGS (3)
  1. DOXYCYCLINE [Suspect]
     Active Substance: DOXYCYCLINE
     Indication: Respiratory tract infection
     Dosage: UNK
     Route: 065
     Dates: start: 20211213
  2. PREDNISONE [Suspect]
     Active Substance: PREDNISONE
     Indication: Respiratory tract infection
     Dosage: UNK
     Route: 065
     Dates: start: 20211213
  3. SPIKEVAX [Suspect]
     Active Substance: ELASOMERAN
     Indication: COVID-19 immunisation
     Dosage: 1 DOSAGE FORM
     Route: 065
     Dates: start: 20211224

REACTIONS (5)
  - Pyrexia [Recovered/Resolved]
  - Fatigue [Recovering/Resolving]
  - Asthma [Recovering/Resolving]
  - Myalgia [Recovered/Resolved]
  - Headache [Recovered/Resolved]

NARRATIVE: CASE EVENT DATE: 20211225
